FAERS Safety Report 24623113 (Version 1)
Quarter: 2024Q4

REPORT INFORMATION
  Report Type: Spontaneous
  Country: IN (occurrence: IN)
  Receive Date: 20241115
  Receipt Date: 20241115
  Transmission Date: 20250115
  Serious: Yes (Hospitalization, Other)
  Sender: ELITE
  Company Number: IN-ELITEPHARMA-2024ELLIT00304

PATIENT
  Age: 24 Year
  Sex: Male

DRUGS (1)
  1. NALTREXONE [Suspect]
     Active Substance: NALTREXONE
     Indication: Drug dependence
     Dosage: MORNING
     Route: 065

REACTIONS (2)
  - Delirium [Recovering/Resolving]
  - Intentional product misuse [Unknown]
